FAERS Safety Report 4613327-5 (Version None)
Quarter: 2005Q1

REPORT INFORMATION
  Report Type: 
  Country: None (occurrence: None)
  Receive Date: 20050315
  Receipt Date: 20050302
  Transmission Date: 20050727
  Serious: Yes (Hospitalization, Other)
  Sender: FDA-Public Use
  Company Number: 2005019442

PATIENT
  Age: 92 Year
  Sex: Female

DRUGS (5)
  1. CELEBREX [Suspect]
     Indication: ARTHRALGIA
     Dosage: 200 MG (200 MG, 1 IN 1 D), ORAL
     Route: 048
     Dates: start: 20041103, end: 20041206
  2. ROFECOXIB [Suspect]
     Indication: OSTEOARTHRITIS
     Dates: start: 20040101, end: 20040901
  3. LOSARTAN POTASSIUM [Concomitant]
  4. OXAZEPAM [Concomitant]
  5. DI-GESIC (DEXTROPROPOXYPHENE, PARACETAMOL) [Concomitant]

REACTIONS (2)
  - BLOOD PRESSURE SYSTOLIC INCREASED [None]
  - CONDITION AGGRAVATED [None]
